FAERS Safety Report 7557869-1 (Version None)
Quarter: 2011Q2

REPORT INFORMATION
  Report Type: 
  Country: None (occurrence: None)
  Receive Date: 20110620
  Receipt Date: 20110527
  Transmission Date: 20111010
  Serious: Yes (Death, Hospitalization)
  Sender: FDA-Public Use
  Company Number: A0761170A

PATIENT
  Age: 58 Year
  Sex: Female
  Weight: 65.5 kg

DRUGS (12)
  1. EVISTA [Concomitant]
  2. GLUCOPHAGE [Concomitant]
  3. VICODIN [Concomitant]
  4. AVANDIA [Suspect]
     Route: 048
     Dates: start: 20000201, end: 20060101
  5. FLEXERIL [Concomitant]
  6. ZESTORETIC [Concomitant]
  7. NIACIN [Concomitant]
  8. LIPITOR [Concomitant]
  9. ZIAC [Concomitant]
  10. GLUCOTROL XL [Concomitant]
  11. ZETIA [Concomitant]
  12. FERROUS SULFATE TAB [Concomitant]

REACTIONS (6)
  - CARDIAC FAILURE CONGESTIVE [None]
  - CORONARY ARTERY DISEASE [None]
  - SHOCK HAEMORRHAGIC [None]
  - RENAL FAILURE ACUTE [None]
  - CARDIOMYOPATHY [None]
  - LOCALISED INFECTION [None]
